FAERS Safety Report 7622513-1 (Version None)
Quarter: 2011Q3

REPORT INFORMATION
  Report Type: 
  Country: None (occurrence: None)
  Receive Date: 20110712
  Receipt Date: 20110708
  Transmission Date: 20111222
  Serious: Yes (Other)
  Sender: FDA-Public Use
  Company Number: 2010SP063509

PATIENT
  Age: 67 Year
  Sex: Male

DRUGS (4)
  1. DEPAS (ETIZOLAM) [Suspect]
     Indication: PRODUCT USED FOR UNKNOWN INDICATION
     Dosage: 1 MG;TID;PO V
     Route: 048
  2. HALCION [Concomitant]
  3. TEMOCAPRIL (TEMOCAPRIL IYDROCHLORIDE) [Concomitant]
  4. REMERON [Suspect]
     Indication: PRODUCT USED FOR UNKNOWN INDICATION
     Dosage: ;PO
     Route: 048

REACTIONS (2)
  - RHABDOMYOLYSIS [None]
  - NEUROLEPTIC MALIGNANT SYNDROME [None]
